FAERS Safety Report 9786267 (Version 1)
Quarter: 2013Q4

REPORT INFORMATION
  Report Type: Spontaneous
  Country: None (occurrence: US)
  Receive Date: 20131227
  Receipt Date: 20131227
  Transmission Date: 20140711
  Serious: No
  Sender: FDA-Public Use
  Company Number: US-TEVA-451980USA

PATIENT
  Age: 75 Year
  Sex: Male

DRUGS (1)
  1. AMRIX [Suspect]
     Dosage: 15 MILLIGRAM DAILY;
     Dates: start: 201312

REACTIONS (1)
  - Therapeutic response unexpected [Unknown]
